FAERS Safety Report 25423995 (Version 1)
Quarter: 2025Q2

REPORT INFORMATION
  Report Type: Spontaneous
  Country: US (occurrence: None)
  Receive Date: 20250604
  Receipt Date: 20250604
  Transmission Date: 20250716
  Serious: Yes (Hospitalization, Other)
  Sender: FDA-CTU
  Company Number: None

PATIENT
  Age: 27 Year
  Sex: Female
  Weight: 54 kg

DRUGS (2)
  1. APIXABAN [Suspect]
     Active Substance: APIXABAN
  2. APRI [Concomitant]
     Active Substance: DESOGESTREL\ETHINYL ESTRADIOL

REACTIONS (3)
  - Thrombosis [None]
  - Weight bearing difficulty [None]
  - Femur fracture [None]

NARRATIVE: CASE EVENT DATE: 20250531
